FAERS Safety Report 21260871 (Version 1)
Quarter: 2022Q3

REPORT INFORMATION
  Report Type: Spontaneous
  Country: US (occurrence: US)
  Receive Date: 20220826
  Receipt Date: 20220826
  Transmission Date: 20221026
  Serious: Yes (Other)
  Sender: FDA-Public Use
  Company Number: US-BAYER-2022A116754

PATIENT

DRUGS (1)
  1. ASTEPRO [Suspect]
     Active Substance: AZELASTINE HYDROCHLORIDE
     Dosage: ONE SPRAY PER NOSTRIL IN THE MORNING AND EVENING.
     Dates: start: 20220803, end: 202208

REACTIONS (3)
  - Atrial fibrillation [Not Recovered/Not Resolved]
  - Blood pressure increased [Unknown]
  - Chest pain [Recovered/Resolved]

NARRATIVE: CASE EVENT DATE: 20220801
